FAERS Safety Report 14574028 (Version 1)
Quarter: 2018Q1

REPORT INFORMATION
  Report Type: Spontaneous
  Country: US (occurrence: US)
  Receive Date: 20180224
  Receipt Date: 20180224
  Transmission Date: 20180509
  Serious: Yes (Death)
  Sender: FDA-Public Use
  Company Number: None

PATIENT
  Sex: Female

DRUGS (14)
  1. BUSPIRONE [Concomitant]
     Active Substance: BUSPIRONE HYDROCHLORIDE
  2. DICLOFENAC [Concomitant]
     Active Substance: DICLOFENAC
  3. OXYCODONE [Concomitant]
     Active Substance: OXYCODONE
  4. VENTOLIN [Concomitant]
     Active Substance: ALBUTEROL SULFATE
  5. LIDOCAINE. [Concomitant]
     Active Substance: LIDOCAINE
  6. LISINOPRIL. [Concomitant]
     Active Substance: LISINOPRIL
  7. POTASSIUM [Concomitant]
     Active Substance: POTASSIUM
  8. DEXAMETHASONE. [Concomitant]
     Active Substance: DEXAMETHASONE
  9. MATULANE [Concomitant]
     Active Substance: PROCARBAZINE HYDROCHLORIDE
  10. NYSTATIN. [Concomitant]
     Active Substance: NYSTATIN
  11. PROPANOLOL [Concomitant]
     Active Substance: PROPRANOLOL HYDROCHLORIDE
  12. GLEOSTINE [Suspect]
     Active Substance: LOMUSTINE
     Indication: BRAIN NEOPLASM MALIGNANT
     Dosage: FREQUENCY - EVERY 6 WEEKS
     Route: 048
     Dates: start: 20180126
  13. METFORMIN [Concomitant]
     Active Substance: METFORMIN HYDROCHLORIDE
  14. WARFARIN [Concomitant]
     Active Substance: WARFARIN

REACTIONS (1)
  - Death [None]
